FAERS Safety Report 4667371-2 (Version None)
Quarter: 2005Q2

REPORT INFORMATION
  Report Type: 
  Country: None (occurrence: None)
  Receive Date: 20050520
  Receipt Date: 20041021
  Transmission Date: 20051028
  Serious: Yes (Other)
  Sender: FDA-Public Use
  Company Number: PHEH2004US11290

PATIENT
  Age: 72 Year
  Sex: Female

DRUGS (9)
  1. ZOMETA [Suspect]
     Indication: MULTIPLE MYELOMA
     Dosage: 4 MG MONTHLY
     Route: 042
     Dates: start: 20030829
  2. LIPITOR [Concomitant]
  3. VALIUM [Concomitant]
  4. TAMOXIFEN [Concomitant]
  5. LISOPRESS [Concomitant]
  6. ZOLOFT [Concomitant]
     Indication: DEPRESSION
     Dates: start: 20040201
  7. FOSAMAX [Concomitant]
     Indication: OSTEOPOROSIS
  8. THALIDOMIDE [Concomitant]
     Indication: MULTIPLE MYELOMA
     Dosage: 100 MG, QD
     Dates: start: 20030926
  9. PREDNISONE TAB [Concomitant]
     Dosage: 5 DAYS PER MONTH

REACTIONS (4)
  - DENTAL OPERATION [None]
  - ENDODONTIC PROCEDURE [None]
  - OSTEONECROSIS [None]
  - PAIN IN JAW [None]
